FAERS Safety Report 18695750 (Version 1)
Quarter: 2021Q1

REPORT INFORMATION
  Report Type: Spontaneous
  Country: GB (occurrence: GB)
  Receive Date: 20210104
  Receipt Date: 20210104
  Transmission Date: 20210419
  Serious: Yes (Other)
  Sender: FDA-Public Use
  Company Number: GB-MYLANLABS-2020M1105694

PATIENT
  Age: 75 Year
  Sex: Female
  Weight: 72 kg

DRUGS (11)
  1. COCODAMOL [Concomitant]
     Active Substance: ACETAMINOPHEN\CODEINE PHOSPHATE
     Dosage: TAKE 1 OR 2, UP TO 4 TIMES/DAY
     Dates: start: 20201201
  2. LERCANIDIPINE HYDROCHLORIDE [Concomitant]
     Active Substance: LERCANIDIPINE HYDROCHLORIDE
     Dosage: 1 DOSAGE FORM, QD
     Dates: start: 20201125
  3. FYBOGEL [Concomitant]
     Active Substance: PLANTAGO OVATA SEED
     Dosage: USE AS DIRECTED
     Dates: start: 20200212, end: 20201020
  4. BENDROFLUMETHIAZIDE [Concomitant]
     Active Substance: BENDROFLUMETHIAZIDE
     Dosage: EACH MORNING
     Dates: start: 20200212
  5. AMOXICILLIN. [Concomitant]
     Active Substance: AMOXICILLIN
     Dosage: 2 GRAM, QD
     Dates: start: 20201128, end: 20201205
  6. RANITIDINE. [Concomitant]
     Active Substance: RANITIDINE
     Dosage: 2 DOSAGE FORM, QD
     Dates: start: 20201028, end: 20201127
  7. METRONIDAZOLE. [Suspect]
     Active Substance: METRONIDAZOLE
     Indication: PRODUCT USED FOR UNKNOWN INDICATION
     Dosage: 400 MILLIGRAM
     Dates: start: 20201207
  8. CLARITHROMYCIN. [Concomitant]
     Active Substance: CLARITHROMYCIN
     Dosage: 2 DOSAGE FORM, QD
     Dates: start: 20201128, end: 20201205
  9. OMEPRAZOLE. [Concomitant]
     Active Substance: OMEPRAZOLE
     Dosage: 1 DOSAGE FORM, QD
     Dates: start: 20201128
  10. HYDROCORTISONE. [Concomitant]
     Active Substance: HYDROCORTISONE
     Dosage: APPLY THINLY, TO THE AFFECTED AREAS
     Dates: start: 20201207
  11. LOSARTAN. [Concomitant]
     Active Substance: LOSARTAN
     Dosage: 1 DOSAGE FORM, QD
     Dates: start: 20200212

REACTIONS (1)
  - Rash papular [Not Recovered/Not Resolved]

NARRATIVE: CASE EVENT DATE: 20201207
